FAERS Safety Report 5362898-2 (Version None)
Quarter: 2007Q2

REPORT INFORMATION
  Report Type: 
  Country: None (occurrence: None)
  Receive Date: 20070615
  Receipt Date: 20070530
  Transmission Date: 20071010
  Serious: Yes (Hospitalization)
  Sender: FDA-Public Use
  Company Number: 8024618

PATIENT
  Age: 40 Year
  Sex: Male

DRUGS (5)
  1. KEPPRA [Suspect]
     Indication: PARTIAL SEIZURES WITH SECONDARY GENERALISATION
     Dosage: 500 MG 2/D PO
     Route: 048
     Dates: start: 20070101
  2. WARFARIN [Suspect]
  3. CARVEDILOL [Suspect]
  4. GUAIFENISEN [Suspect]
  5. COENZYME Q10 [Suspect]

REACTIONS (3)
  - ACUTE HEPATIC FAILURE [None]
  - HEPATITIS TOXIC [None]
  - MELAS SYNDROME [None]
